FAERS Safety Report 4629471-2 (Version None)
Quarter: 2005Q2

REPORT INFORMATION
  Report Type: 
  Country: None (occurrence: None)
  Receive Date: 20050405
  Receipt Date: 20050321
  Transmission Date: 20051028
  Serious: Yes (Other)
  Sender: FDA-Public Use
  Company Number: PHNR2004AU01384

PATIENT
  Age: 87 Year
  Sex: Female
  Weight: 52.0276 kg

DRUGS (20)
  1. VISUDYNE [Suspect]
     Dosage: 6.4 MG DAILY, IV
     Route: 042
     Dates: start: 20050225, end: 20050225
  2. VISUDYNE [Suspect]
     Dosage: 8.6 MG DAILY IV
     Route: 042
     Dates: start: 20040827, end: 20040827
  3. ASTRIX [Concomitant]
  4. CELEBREX [Concomitant]
  5. CORDARONE [Concomitant]
  6. COVERSYL [Concomitant]
  7. FOSAMAX [Concomitant]
  8. LASIX [Concomitant]
  9. LIPITOR [Concomitant]
  10. MINAX [Concomitant]
  11. MIRTAZAPINE [Concomitant]
  12. PANAFCORTELONE [Concomitant]
  13. PANAMAX [Concomitant]
  14. RABEPRAZOLE SODIUM [Concomitant]
  15. PRAMIN [Concomitant]
  16. TEMTABS [Concomitant]
  17. TIMOLOL MALEATE [Concomitant]
  18. TRAMADOL HCL [Concomitant]
  19. NITRODERM [Concomitant]
  20. XALATAN [Concomitant]

REACTIONS (4)
  - ABDOMINAL PAIN UPPER [None]
  - BACK PAIN [None]
  - CHEST PAIN [None]
  - DYSPEPSIA [None]
